FAERS Safety Report 7791993-3 (Version None)
Quarter: 2011Q3

REPORT INFORMATION
  Report Type: 
  Country: None (occurrence: None)
  Receive Date: 20110929
  Receipt Date: 20110920
  Transmission Date: 20111222
  Serious: Yes (Hospitalization)
  Sender: FDA-Public Use
  Company Number: 2010004250

PATIENT
  Age: 75 Year
  Sex: Female

DRUGS (1)
  1. TARCEVA [Suspect]
     Indication: LUNG CARCINOMA CELL TYPE UNSPECIFIED STAGE 0
     Dosage: 100 MG, UID/QD, ORAL     100 MG, UID/QD, ORAL
     Route: 048
     Dates: start: 20100828

REACTIONS (9)
  - PULMONARY EMBOLISM [None]
  - MUCOSAL INFLAMMATION [None]
  - GASTRIC ULCER [None]
  - DRY SKIN [None]
  - PRURITUS [None]
  - OCULAR HYPERAEMIA [None]
  - PERIPHERAL EMBOLISM [None]
  - FAECES DISCOLOURED [None]
  - RASH [None]
